FAERS Safety Report 15081194 (Version 11)
Quarter: 2025Q1

REPORT INFORMATION
  Report Type: Report from Study
  Country: GB (occurrence: GB)
  Receive Date: 20180628
  Receipt Date: 20250124
  Transmission Date: 20250409
  Serious: No
  Sender: AMGEN
  Company Number: GB-AMGEN-GBRNI2018086508

PATIENT
  Age: 30 Year
  Sex: Female
  Weight: 46.6 kg

DRUGS (23)
  1. BLINATUMOMAB [Suspect]
     Active Substance: BLINATUMOMAB
     Indication: Acute lymphocytic leukaemia
     Dosage: 13.86 MICROGRAM, QD
     Route: 042
     Dates: start: 20180222
  2. PIPERACILLIN [Concomitant]
     Active Substance: PIPERACILLIN
     Dates: start: 20180223, end: 20180318
  3. ALLOPURINOL [Concomitant]
     Active Substance: ALLOPURINOL
     Dates: start: 20180216, end: 20180514
  4. MAGNESIUM ASPARTATE [Concomitant]
     Active Substance: MAGNESIUM ASPARTATE
     Dates: start: 20180226, end: 20180513
  5. LEVOFLOXACIN [Concomitant]
     Active Substance: LEVOFLOXACIN
     Dates: start: 20180306, end: 20180514
  6. POTASSIUM [Concomitant]
     Active Substance: POTASSIUM
     Dates: start: 20180304, end: 20180304
  7. ZOPICLONE [Concomitant]
     Active Substance: ZOPICLONE
     Dates: start: 20180308, end: 20180316
  8. HYDROXYUREA [Concomitant]
     Active Substance: HYDROXYUREA
     Dates: start: 20180313, end: 20180405
  9. ACYCLOVIR [Concomitant]
     Active Substance: ACYCLOVIR
     Dates: start: 20180219, end: 20180514
  10. ACETAMINOPHEN [Concomitant]
     Active Substance: ACETAMINOPHEN
     Indication: Pain in extremity
     Dates: start: 20180215, end: 20180420
  11. CALCIUM CHLORIDE\POTASSIUM CHLORIDE\SODIUM CHLORIDE\SODIUM LACTATE [Concomitant]
     Active Substance: CALCIUM CHLORIDE\POTASSIUM CHLORIDE\SODIUM CHLORIDE\SODIUM LACTATE
     Dates: start: 20180223, end: 20180223
  12. FOLIC ACID [Concomitant]
     Active Substance: FOLIC ACID
     Dates: start: 20180220, end: 20180316
  13. TAZOBACTAM [Concomitant]
     Active Substance: TAZOBACTAM
     Dates: start: 20180223, end: 20180318
  14. SULFAMETHOXAZOLE [Concomitant]
     Active Substance: SULFAMETHOXAZOLE
     Dates: start: 20180220, end: 20180316
  15. TRIMETHOPRIM [Concomitant]
     Active Substance: TRIMETHOPRIM
     Dates: start: 20180220, end: 20180316
  16. AMOXICILLIN [Concomitant]
     Active Substance: AMOXICILLIN
     Dates: start: 20180220, end: 20180223
  17. CHLORHEXIDINE GLUCONATE [Concomitant]
     Active Substance: CHLORHEXIDINE GLUCONATE
     Dates: start: 20180220, end: 20180310
  18. MUPIROCIN [Concomitant]
     Active Substance: MUPIROCIN
     Route: 045
     Dates: start: 20180220, end: 20180301
  19. PHYTONADIONE [Concomitant]
     Active Substance: PHYTONADIONE
     Dates: start: 20180223, end: 20180226
  20. DEXAMETHASONE [Concomitant]
     Active Substance: DEXAMETHASONE
     Dates: start: 20180220, end: 20180327
  21. RASBURICASE [Concomitant]
     Active Substance: RASBURICASE
     Dates: start: 20180313, end: 20180408
  22. POTASSIUM BICARBONATE\POTASSIUM CHLORIDE [Concomitant]
     Active Substance: POTASSIUM BICARBONATE\POTASSIUM CHLORIDE
     Dates: start: 20180226, end: 20180227
  23. MORPHINE [Concomitant]
     Active Substance: MORPHINE

REACTIONS (1)
  - Pyrexia [Recovered/Resolved]

NARRATIVE: CASE EVENT DATE: 20180320
